FAERS Safety Report 11723421 (Version 22)
Quarter: 2019Q3

REPORT INFORMATION
  Report Type: Report from Study
  Country: CA (occurrence: CA)
  Receive Date: 20151111
  Receipt Date: 20190916
  Transmission Date: 20191004
  Serious: Yes (Hospitalization, Other)
  Sender: FDA-Public Use
  Company Number: PHHY2012CA038909

PATIENT
  Age: 48 Year
  Sex: Female

DRUGS (15)
  1. SANDOSTATIN [Suspect]
     Active Substance: OCTREOTIDE ACETATE
     Indication: POLYCYSTIC LIVER DISEASE
     Dosage: UNK, QD
     Route: 058
     Dates: start: 201102, end: 201102
  2. SANDOSTATIN LAR DEPOT [Suspect]
     Active Substance: OCTREOTIDE ACETATE
     Dosage: 40 MG, QMO (ONCE A MONTH)
     Route: 030
     Dates: start: 20190802, end: 20190803
  3. MARIJUANA [Suspect]
     Active Substance: CANNABIS SATIVA SUBSP. INDICA TOP
     Indication: DECREASED APPETITE
     Dosage: UNK
     Route: 065
  4. TETRAHYDROCANNABINOL [Suspect]
     Active Substance: DRONABINOL
     Indication: PRODUCT USED FOR UNKNOWN INDICATION
     Dosage: UNK
     Route: 065
  5. AMITRIPTYLLINE [Concomitant]
     Active Substance: AMITRIPTYLINE
     Indication: PRODUCT USED FOR UNKNOWN INDICATION
     Dosage: UNK
     Route: 065
  6. AMLODIPINE [Concomitant]
     Active Substance: AMLODIPINE BESYLATE
     Indication: PRODUCT USED FOR UNKNOWN INDICATION
     Dosage: 5 MG, QD
     Route: 048
  7. MARIJUANA [Suspect]
     Active Substance: CANNABIS SATIVA SUBSP. INDICA TOP
     Indication: PAIN
  8. AMLODIPINE BESYLATE. [Concomitant]
     Active Substance: AMLODIPINE BESYLATE
     Indication: PRODUCT USED FOR UNKNOWN INDICATION
     Dosage: UNK
     Route: 065
  9. SANDOSTATIN LAR DEPOT [Suspect]
     Active Substance: OCTREOTIDE ACETATE
     Indication: POLYCYSTIC LIVER DISEASE
     Dosage: 40 MG, QMO (ONCE A MONTH)
     Route: 030
     Dates: start: 20110307
  10. MORPHINE [Suspect]
     Active Substance: MORPHINE
     Dosage: FOR 4 TO 5 DAYS
     Route: 065
     Dates: start: 201612
  11. MORPHINE [Suspect]
     Active Substance: MORPHINE
     Indication: MUSCULOSKELETAL CHEST PAIN
     Dosage: FOR 2 TO 3 DAYS
     Route: 065
     Dates: start: 201612
  12. SANDOSTATIN LAR DEPOT [Suspect]
     Active Substance: OCTREOTIDE ACETATE
     Indication: CONGENITAL CYSTIC KIDNEY DISEASE
     Dosage: 40 MG, QMO (ONCE A MONTH)
     Route: 030
     Dates: start: 2012
  13. MARIJUANA [Suspect]
     Active Substance: CANNABIS SATIVA SUBSP. INDICA TOP
     Indication: SLEEP DISORDER
  14. PANTOPRAZOLE [Concomitant]
     Active Substance: PANTOPRAZOLE
     Indication: PRODUCT USED FOR UNKNOWN INDICATION
     Dosage: UNK
     Route: 065
  15. CRESTOR [Concomitant]
     Active Substance: ROSUVASTATIN CALCIUM
     Indication: PRODUCT USED FOR UNKNOWN INDICATION
     Dosage: 40 MG, QD
     Route: 048

REACTIONS (25)
  - Vomiting [Recovering/Resolving]
  - Sleep disorder [Unknown]
  - Pain [Unknown]
  - Cough [Unknown]
  - Product use in unapproved indication [Unknown]
  - Rib fracture [Unknown]
  - Emotional disorder [Unknown]
  - Wrong technique in product usage process [Unknown]
  - Weight decreased [Unknown]
  - Malaise [Unknown]
  - Blood pressure systolic increased [Unknown]
  - Hepatomegaly [Unknown]
  - Musculoskeletal chest pain [Recovering/Resolving]
  - Stress [Unknown]
  - Blood cholesterol increased [Unknown]
  - Dyspnoea [Unknown]
  - Cyst rupture [Unknown]
  - Renal disorder [Unknown]
  - Cyst [Unknown]
  - Nasopharyngitis [Unknown]
  - Abdominal discomfort [Unknown]
  - Blood pressure increased [Unknown]
  - Injection site pain [Unknown]
  - Decreased appetite [Unknown]
  - Gait inability [Unknown]

NARRATIVE: CASE EVENT DATE: 2014
